FAERS Safety Report 15409084 (Version 2)
Quarter: 2018Q3

REPORT INFORMATION
  Report Type: Report from Study
  Country: DE (occurrence: DE)
  Receive Date: 20180920
  Receipt Date: 20180927
  Transmission Date: 20181010
  Serious: Yes (Hospitalization)
  Sender: FDA-Public Use
  Company Number: DE-JNJFOC-20180918959

PATIENT
  Age: 81 Year
  Sex: Male
  Weight: 73 kg

DRUGS (6)
  1. INSUMAN RAPID [Concomitant]
     Active Substance: INSULIN HUMAN
  2. XARELTO [Suspect]
     Active Substance: RIVAROXABAN
     Indication: ATRIAL FIBRILLATION
     Route: 048
     Dates: start: 201802, end: 20180822
  3. ALFUZOSIN [Concomitant]
     Active Substance: ALFUZOSIN
     Route: 048
  4. INSUMAN BASAL [Concomitant]
     Active Substance: INSULIN HUMAN
     Route: 065
  5. VALSARTAN. [Concomitant]
     Active Substance: VALSARTAN
     Route: 065
  6. XARELTO [Suspect]
     Active Substance: RIVAROXABAN
     Indication: ANTICOAGULANT THERAPY
     Route: 048
     Dates: start: 201802, end: 20180822

REACTIONS (1)
  - Ischaemic stroke [Recovering/Resolving]

NARRATIVE: CASE EVENT DATE: 20180822
